FAERS Safety Report 15958141 (Version 2)
Quarter: 2019Q1

REPORT INFORMATION
  Report Type: Spontaneous
  Country: US (occurrence: US)
  Receive Date: 20190213
  Receipt Date: 20190320
  Transmission Date: 20190417
  Serious: Yes (Hospitalization, Other)
  Sender: FDA-Public Use
  Company Number: US-NOVOPROD-646372

PATIENT
  Age: 77 Year
  Sex: Male

DRUGS (1)
  1. NOVOLOG [Suspect]
     Active Substance: INSULIN ASPART
     Indication: TYPE 2 DIABETES MELLITUS
     Dosage: 18 IU, BID
     Route: 058

REACTIONS (4)
  - Shock [Recovering/Resolving]
  - Device issue [Unknown]
  - Blood glucose increased [Recovering/Resolving]
  - Device failure [Unknown]

NARRATIVE: CASE EVENT DATE: 201901
